FAERS Safety Report 20767325 (Version 1)
Quarter: 2022Q2

REPORT INFORMATION
  Report Type: Spontaneous
  Country: FR (occurrence: FR)
  Receive Date: 20220429
  Receipt Date: 20220429
  Transmission Date: 20220720
  Serious: Yes (Death)
  Sender: FDA-Public Use
  Company Number: None

PATIENT
  Age: 16 Year
  Sex: Female

DRUGS (2)
  1. TRAMADOL HYDROCHLORIDE [Suspect]
     Active Substance: TRAMADOL HYDROCHLORIDE
     Indication: Drug abuse
     Dosage: LARGE QUANTITIES, SINGLE DOSE, CHLORHYDRATE DE TRAMADOL
     Route: 048
     Dates: start: 20220121
  2. CODEINE [Suspect]
     Active Substance: CODEINE
     Indication: Drug abuse
     Dosage: LARGE QUANTITIES, SINGLE DOSE
     Route: 048
     Dates: start: 20220121

REACTIONS (1)
  - Coma [Fatal]

NARRATIVE: CASE EVENT DATE: 20220121
